FAERS Safety Report 14282076 (Version 1)
Quarter: 2017Q4

REPORT INFORMATION
  Report Type: Spontaneous
  Country: FI (occurrence: FI)
  Receive Date: 20171213
  Receipt Date: 20171213
  Transmission Date: 20180321
  Serious: Yes (Hospitalization)
  Sender: FDA-Public Use
  Company Number: PHHY2017FI168502

PATIENT
  Sex: Female

DRUGS (1)
  1. LAMISIL [Suspect]
     Active Substance: TERBINAFINE HYDROCHLORIDE
     Indication: PRODUCT USED FOR UNKNOWN INDICATION
     Dosage: UNK
     Route: 065

REACTIONS (4)
  - Peripheral swelling [Recovering/Resolving]
  - Skin discolouration [Unknown]
  - Product quality issue [Unknown]
  - Oedema peripheral [Recovering/Resolving]
